FAERS Safety Report 4692585-5 (Version None)
Quarter: 2005Q2

REPORT INFORMATION
  Report Type: 
  Country: None (occurrence: None)
  Receive Date: 20050617
  Receipt Date: 20050428
  Transmission Date: 20051028
  Serious: Yes (Disabling)
  Sender: FDA-Public Use
  Company Number: GB-AMGEN-UK129857

PATIENT
  Sex: Female
  Weight: 68 kg

DRUGS (9)
  1. ARANESP [Suspect]
     Indication: RENAL FAILURE CHRONIC
     Route: 058
     Dates: start: 20050426
  2. IRBESARTAN [Concomitant]
     Route: 048
     Dates: start: 20050404
  3. NADOLOL [Concomitant]
     Route: 048
     Dates: start: 20050404
  4. NITRAZEPAM [Concomitant]
     Route: 048
     Dates: start: 20040618
  5. CIPROXIN [Concomitant]
     Route: 048
     Dates: start: 20031121
  6. AUGMENTIN '125' [Concomitant]
     Route: 048
     Dates: start: 20031121
  7. CALCITRIOL [Concomitant]
     Route: 048
     Dates: start: 20031121
  8. FERROUS SULFATE [Concomitant]
     Route: 048
     Dates: start: 20030411
  9. BACLOFEN [Concomitant]
     Route: 048
     Dates: start: 20030101

REACTIONS (1)
  - DYSKINESIA [None]
